FAERS Safety Report 7719091-5 (Version None)
Quarter: 2011Q3

REPORT INFORMATION
  Report Type: 
  Country: None (occurrence: None)
  Receive Date: 20110830
  Receipt Date: 20110819
  Transmission Date: 20111222
  Serious: Yes (Hospitalization)
  Sender: FDA-Public Use
  Company Number: US-BAYER-201036156NA

PATIENT
  Age: 35 Year
  Sex: Female
  Weight: 86.168 kg

DRUGS (3)
  1. ASCORBIC ACID [Concomitant]
  2. YASMIN [Suspect]
     Dosage: UNK
     Route: 048
     Dates: start: 20070101, end: 20080101
  3. MOTRIN [Concomitant]

REACTIONS (5)
  - ABDOMINAL PAIN [None]
  - DRUG HYPERSENSITIVITY [None]
  - PAIN [None]
  - CHOLECYSTITIS [None]
  - GALLBLADDER NON-FUNCTIONING [None]
